FAERS Safety Report 24915594 (Version 2)
Quarter: 2025Q1

REPORT INFORMATION
  Report Type: Spontaneous
  Country: US (occurrence: US)
  Receive Date: 20250203
  Receipt Date: 20250211
  Transmission Date: 20250409
  Serious: Yes (Other)
  Sender: HIKMA
  Company Number: US-MLMSERVICE-20250123-PI367193-00271-1

PATIENT

DRUGS (1)
  1. PREDNISONE [Suspect]
     Active Substance: PREDNISONE
     Indication: Subacute cutaneous lupus erythematosus
     Route: 065

REACTIONS (4)
  - Weight increased [Unknown]
  - Skin fragility [Unknown]
  - Cataract [Unknown]
  - Gastrooesophageal reflux disease [Unknown]
